FAERS Safety Report 8809815 (Version 3)
Quarter: 2013Q1

REPORT INFORMATION
  Report Type: Spontaneous
  Country: JP (occurrence: JP)
  Receive Date: 20120926
  Receipt Date: 20130117
  Transmission Date: 20140127
  Serious: Yes (Other)
  Sender: FDA-Public Use
  Company Number: JP-B.I. PHARMACEUTICALS,INC./RIDGEFIELD-2012-BP-22284NB

PATIENT
  Sex: Female
  Weight: 45 kg

DRUGS (11)
  1. BI-SIFROL [Suspect]
     Indication: PARKINSON^S DISEASE
     Dosage: 0.75 MG
     Route: 048
     Dates: start: 20070214, end: 20110525
  2. BI-SIFROL [Suspect]
     Dosage: 1 MG
     Route: 048
     Dates: end: 20110525
  3. NEODOPASTON [Concomitant]
     Indication: PARKINSON^S DISEASE
     Dosage: 200 MG
     Route: 048
     Dates: start: 20061129
  4. NAUZELIN [Concomitant]
     Indication: PROPHYLAXIS
     Dosage: 10 MG
     Route: 048
     Dates: start: 20061129
  5. MAGNESIUM OXIDE [Concomitant]
     Route: 048
     Dates: start: 20080128
  6. CALONAL [Concomitant]
     Route: 048
     Dates: start: 20090513
  7. LIPITOR [Concomitant]
     Indication: LIPID METABOLISM DISORDER
     Dosage: 5 MG
     Route: 048
  8. LASIX [Concomitant]
     Indication: CARDIAC FAILURE CONGESTIVE
     Dosage: 20 MG
     Route: 048
  9. NORVASC [Concomitant]
     Indication: HYPERTENSION
     Dosage: 5 MG
     Route: 048
  10. DIOVAN [Concomitant]
     Indication: HYPERTENSION
     Dosage: 80 MG
     Route: 048
  11. BASEN [Concomitant]
     Indication: DIABETES MELLITUS
     Dosage: 0.6 MG
     Route: 048

REACTIONS (1)
  - Dystonia [Not Recovered/Not Resolved]
